FAERS Safety Report 16291390 (Version 1)
Quarter: 2019Q2

REPORT INFORMATION
  Report Type: Spontaneous
  Country: US (occurrence: US)
  Receive Date: 20190509
  Receipt Date: 20190509
  Transmission Date: 20190711
  Serious: No
  Sender: FDA-Public Use
  Company Number: US-BAYER-2019-091750

PATIENT
  Age: 9 Year
  Sex: Male
  Weight: 34 kg

DRUGS (1)
  1. CLARITIN [Suspect]
     Active Substance: LORATADINE
     Indication: ASTHMA
     Dosage: 2 DF, UNK
     Route: 048
     Dates: start: 20190426, end: 20190503

REACTIONS (4)
  - Drug ineffective for unapproved indication [Unknown]
  - Rash [Recovered/Resolved]
  - Epistaxis [Recovered/Resolved]
  - Expired product administered [Unknown]

NARRATIVE: CASE EVENT DATE: 2019
